FAERS Safety Report 6236391-9 (Version None)
Quarter: 2009Q2

REPORT INFORMATION
  Report Type: 
  Country: None (occurrence: None)
  Receive Date: 20090619
  Receipt Date: 20090611
  Transmission Date: 20091009
  Serious: Yes (Hospitalization)
  Sender: FDA-Public Use
  Company Number: AU-ABBOTT-09P-008-0578427-00

PATIENT
  Sex: Female

DRUGS (18)
  1. HUMIRA [Suspect]
     Indication: CROHN'S DISEASE
     Route: 058
     Dates: start: 20080925, end: 20090423
  2. IMODIUM [Concomitant]
     Indication: DIARRHOEA
     Dates: start: 20021009
  3. NEO-CYTAMEN [Concomitant]
     Indication: VITAMIN B12 DEFICIENCY
     Dates: start: 19840801
  4. CHOLESTYRAMINE [Concomitant]
     Indication: DIARRHOEA
     Dates: start: 19940801
  5. OSTELIN [Concomitant]
     Indication: VITAMIN D DEFICIENCY
     Dates: start: 20051206
  6. MAGMIN [Concomitant]
     Indication: MINERAL SUPPLEMENTATION
     Dates: start: 20051031
  7. CALTRATE [Concomitant]
     Indication: OSTEOPENIA
     Dates: start: 20050118
  8. BLACKMORES WOMEN'S VITALITY MULTI [Concomitant]
     Indication: VITAMIN SUPPLEMENTATION
     Dosage: 1/2 TABLET
     Dates: start: 20070110
  9. METHOTREXATE [Concomitant]
     Indication: CROHN'S DISEASE
     Dates: start: 20041030, end: 20090114
  10. MESASAL [Concomitant]
     Indication: CROHN'S DISEASE
     Dates: start: 20050118, end: 20090325
  11. MESASAL [Concomitant]
     Dates: start: 20090326, end: 20090514
  12. PREDNISOLONE [Concomitant]
     Indication: CROHN'S DISEASE
     Dates: start: 20071101, end: 20081111
  13. PREDNISOLONE [Concomitant]
     Dates: start: 20081112, end: 20090127
  14. PREDNISOLONE [Concomitant]
     Dates: start: 20090128, end: 20090210
  15. PREDNISOLONE [Concomitant]
     Dates: start: 20090211, end: 20090225
  16. PREDNISOLONE [Concomitant]
     Dates: start: 20090226, end: 20090312
  17. PREDNISOLONE [Concomitant]
     Dates: start: 20090313, end: 20090320
  18. ZOLOFT [Concomitant]
     Indication: DEPRESSION
     Dates: start: 20090414

REACTIONS (1)
  - CROHN'S DISEASE [None]
